FAERS Safety Report 7681050-9 (Version None)
Quarter: 2011Q3

REPORT INFORMATION
  Report Type: 
  Country: None (occurrence: None)
  Receive Date: 20110809
  Receipt Date: 20110804
  Transmission Date: 20111222
  Serious: Yes (Other)
  Sender: FDA-Public Use
  Company Number: ACO_26016_2011

PATIENT
  Age: 54 Year
  Sex: Female

DRUGS (10)
  1. TYSABRI [Concomitant]
  2. SANCTURA [Concomitant]
  3. ZESTRIL [Concomitant]
  4. SULAR [Concomitant]
  5. CELEXA [Concomitant]
  6. PRAVACHOL [Concomitant]
  7. VALIUM [Concomitant]
  8. AMPYRA [Suspect]
     Indication: MULTIPLE SCLEROSIS
     Dosage: 10 MG, Q 12 HRS, ORAL
     Route: 048
     Dates: start: 20110301, end: 20110101
  9. ZANAFLEX [Suspect]
     Indication: PRODUCT USED FOR UNKNOWN INDICATION
  10. VITAMIN D NOS (VITAMIN D NOS) [Concomitant]

REACTIONS (1)
  - HALLUCINATION, VISUAL [None]
